FAERS Safety Report 11154752 (Version 1)
Quarter: 2015Q2

REPORT INFORMATION
  Report Type: Spontaneous
  Country: US (occurrence: None)
  Receive Date: 20150601
  Receipt Date: 20150601
  Transmission Date: 20150821
  Serious: Yes (Other)
  Sender: FDA-Public Use
  Company Number: None

PATIENT
  Age: 77 Year
  Sex: Female

DRUGS (1)
  1. MUPIROCIN. [Suspect]
     Active Substance: MUPIROCIN
     Indication: PYODERMA
     Route: 061
     Dates: start: 20150507, end: 20150508

REACTIONS (3)
  - Dizziness [None]
  - Nausea [None]
  - Abasia [None]

NARRATIVE: CASE EVENT DATE: 20150508
